FAERS Safety Report 15734750 (Version 2)
Quarter: 2018Q4

REPORT INFORMATION
  Report Type: Spontaneous
  Country: US (occurrence: US)
  Receive Date: 20181218
  Receipt Date: 20181220
  Transmission Date: 20190205
  Serious: Yes (Other)
  Sender: FDA-Public Use
  Company Number: US-PFIZER INC-2018517269

PATIENT
  Age: 69 Year
  Sex: Female

DRUGS (2)
  1. SUTENT [Suspect]
     Active Substance: SUNITINIB MALATE
     Indication: RENAL CANCER
     Dosage: 50 MG, CYCLIC(DAILY FOR 4 WEEKS FOLLOWED BY 2 WEEKS OFF)
     Dates: start: 20181205, end: 201812
  2. SUTENT [Suspect]
     Active Substance: SUNITINIB MALATE
     Indication: ADJUVANT THERAPY

REACTIONS (6)
  - Dizziness [Unknown]
  - Fluid intake reduced [Unknown]
  - Intentional product misuse [Unknown]
  - Malaise [Unknown]
  - Headache [Unknown]
  - Syncope [Unknown]

NARRATIVE: CASE EVENT DATE: 201812
